FAERS Safety Report 21064566 (Version 1)
Quarter: 2022Q3

REPORT INFORMATION
  Report Type: Spontaneous
  Country: US (occurrence: None)
  Receive Date: 20220709
  Receipt Date: 20220709
  Transmission Date: 20221026
  Serious: Yes (Hospitalization)
  Sender: FDA-Public Use
  Company Number: None

PATIENT
  Sex: Female
  Weight: 56 kg

DRUGS (5)
  1. DAUNORUBICIN [Suspect]
     Active Substance: DAUNORUBICIN
     Dates: end: 20220628
  2. ONCASPAR [Suspect]
     Active Substance: PEGASPARGASE
     Dates: end: 20220617
  3. PREDNISOLONE [Suspect]
     Active Substance: PREDNISOLONE
     Dates: end: 20220630
  4. CYTARABINE [Suspect]
     Active Substance: CYTARABINE
     Dates: end: 20220614
  5. VINCRISTINE SULFATE [Suspect]
     Active Substance: VINCRISTINE SULFATE
     Dates: end: 20220628

REACTIONS (14)
  - Fungal infection [None]
  - Pancytopenia [None]
  - Constipation [None]
  - Menstrual disorder [None]
  - Catheter site haemorrhage [None]
  - Ecthyma [None]
  - Sepsis [None]
  - Immunosuppression [None]
  - Tachycardia [None]
  - Catheter site necrosis [None]
  - Nausea [None]
  - Eating disorder [None]
  - Febrile neutropenia [None]
  - Haemodynamic instability [None]

NARRATIVE: CASE EVENT DATE: 20220630
